FAERS Safety Report 4478727-5 (Version None)
Quarter: 2004Q4

REPORT INFORMATION
  Report Type: 
  Country: None (occurrence: None)
  Receive Date: 20041019
  Receipt Date: 20040908
  Transmission Date: 20050328
  Serious: Yes (Life-Threatening, Hospitalization)
  Sender: FDA-Public Use
  Company Number: PHBS2004JP11897

PATIENT
  Age: 88 Year
  Sex: Female

DRUGS (10)
  1. GLEEVEC [Suspect]
     Indication: CHRONIC MYELOID LEUKAEMIA
     Dosage: 400 MG, QD
     Route: 048
     Dates: start: 20020110, end: 20020207
  2. GLEEVEC [Suspect]
     Dosage: 400 MG, QD
     Route: 048
     Dates: start: 20020226, end: 20020327
  3. GLEEVEC [Suspect]
     Dosage: 300 MG, QD
     Route: 048
     Dates: start: 20020328, end: 20020501
  4. GLEEVEC [Suspect]
     Dosage: 200 MG, QD
     Route: 048
     Dates: start: 20020502, end: 20020515
  5. GLEEVEC [Suspect]
     Dosage: 300 MG, QD
     Route: 048
     Dates: start: 20020516, end: 20020529
  6. GLEEVEC [Suspect]
     Dosage: 200 MG, QD
     Route: 048
     Dates: start: 20020530
  7. RYTHMODAN [Concomitant]
     Dosage: 250 MG/D
     Route: 048
  8. ALLOPURINOL [Concomitant]
     Indication: HYPERURICAEMIA
     Dosage: 100 MG/D
     Route: 048
  9. LASIX [Concomitant]
     Dosage: 20 MG/D
     Route: 048
  10. NORVASC [Concomitant]
     Dosage: 5 MG/D
     Route: 048

REACTIONS (3)
  - ENDOSCOPY GASTROINTESTINAL ABNORMAL [None]
  - EPIGASTRIC DISCOMFORT [None]
  - GASTRIC CANCER [None]
